FAERS Safety Report 15245953 (Version 2)
Quarter: 2019Q3

REPORT INFORMATION
  Report Type: Spontaneous
  Country: AR (occurrence: AR)
  Receive Date: 20180806
  Receipt Date: 20190730
  Transmission Date: 20191004
  Serious: Yes (Other)
  Sender: FDA-Public Use
  Company Number: AR-PFIZER INC-2018310579

PATIENT
  Age: 30 Year
  Sex: Female

DRUGS (2)
  1. PREMARIN [Suspect]
     Active Substance: ESTROGENS, CONJUGATED
     Dosage: UNK
  2. FARLUTALE [Suspect]
     Active Substance: MEDROXYPROGESTERONE ACETATE
     Indication: TURNER^S SYNDROME
     Dosage: UNK

REACTIONS (4)
  - Bone disorder [Unknown]
  - Haemorrhage [Unknown]
  - Off label use [Unknown]
  - Product use in unapproved indication [Unknown]
